FAERS Safety Report 8927462 (Version 1)
Quarter: 2012Q4

REPORT INFORMATION
  Report Type: 
  Country: US (occurrence: US)
  Receive Date: 20121127
  Receipt Date: 20121127
  Transmission Date: 20130627
  Serious: Yes (Other)
  Sender: FDA-Public Use
  Company Number: US-BAYER-2012-122496

PATIENT
  Age: 42 Year
  Sex: Female

DRUGS (17)
  1. YAZ [Suspect]
  2. YASMIN [Suspect]
     Indication: ACNE
  3. GIANVI [Suspect]
  4. FLUOXETINE [Concomitant]
     Dosage: 20 mg, UNK
     Dates: start: 20120415
  5. FLUOXETINE [Concomitant]
     Dosage: 20 mg, UNK
     Dates: start: 20120525
  6. FLUOXETINE [Concomitant]
     Dosage: 20 mg, UNK
     Dates: start: 20120611
  7. ERYTHROMYCIN [Concomitant]
     Dosage: UNK
     Dates: start: 20120405
  8. AMITRIPTYLINE [Concomitant]
     Dosage: 10 mg, UNK
     Dates: start: 20120412
  9. TAZORAC [Concomitant]
     Dosage: UNK
     Dates: start: 20120517
  10. IBUPROFEN [Concomitant]
     Dosage: 800 mg, UNK
     Dates: start: 20120625
  11. ALLEGRA [Concomitant]
  12. VITAMIN D [Concomitant]
  13. BETASERON [Concomitant]
  14. NUVIGIL [Concomitant]
  15. TRAMADOL [Concomitant]
  16. FISH OIL [Concomitant]
  17. TRETINOIN [Concomitant]

REACTIONS (2)
  - Thrombophlebitis superficial [None]
  - Off label use [None]
